FAERS Safety Report 12624363 (Version 1)
Quarter: 2016Q3

REPORT INFORMATION
  Report Type: Spontaneous
  Country: US (occurrence: US)
  Receive Date: 20160805
  Receipt Date: 20160805
  Transmission Date: 20161109
  Serious: No
  Sender: FDA-Public Use
  Company Number: US-TEVA-675606USA

PATIENT

DRUGS (1)
  1. COPAXONE [Suspect]
     Active Substance: GLATIRAMER ACETATE
     Dosage: FORM STRENGTH: UNKNOWN

REACTIONS (9)
  - Vision blurred [Unknown]
  - Memory impairment [Unknown]
  - Central nervous system lesion [Unknown]
  - Muscular weakness [Unknown]
  - Drug ineffective [Unknown]
  - Balance disorder [Unknown]
  - Paraesthesia [Unknown]
  - Fall [Unknown]
  - Treatment failure [Unknown]

NARRATIVE: CASE EVENT DATE: 201509
